FAERS Safety Report 10147513 (Version 1)
Quarter: 2014Q2

REPORT INFORMATION
  Report Type: Spontaneous
  Country: IT (occurrence: IT)
  Receive Date: 20140501
  Receipt Date: 20140501
  Transmission Date: 20141212
  Serious: Yes (Life-Threatening)
  Sender: FDA-Public Use
  Company Number: IT-MYLANLABS-2014S1009380

PATIENT
  Age: 69 Year
  Sex: Female
  Weight: 70 kg

DRUGS (5)
  1. DICLOFENAC SODIUM [Suspect]
     Indication: NECK PAIN
     Dosage: 75 MG TOTAL
     Route: 030
     Dates: start: 20140415, end: 20140415
  2. MUSCORIL [Suspect]
     Indication: NECK PAIN
     Dosage: 4 MG TOTAL
     Route: 030
     Dates: start: 20140415, end: 20140415
  3. CARDIOASPIRIN [Concomitant]
     Indication: PRODUCT USED FOR UNKNOWN INDICATION
     Route: 048
     Dates: start: 20130401, end: 20140416
  4. DINAPRES [Concomitant]
     Indication: ESSENTIAL HYPERTENSION
     Route: 048
     Dates: start: 20120106, end: 20140416
  5. NOLPAZA [Concomitant]
     Indication: PRODUCT USED FOR UNKNOWN INDICATION
     Route: 048

REACTIONS (3)
  - Erythema [Recovered/Resolved]
  - Presyncope [Recovered/Resolved]
  - Pruritus generalised [Recovered/Resolved]
